FAERS Safety Report 5427786-1 (Version None)
Quarter: 2007Q3

REPORT INFORMATION
  Report Type: 
  Country: None (occurrence: None)
  Receive Date: 20070828
  Receipt Date: 20070821
  Transmission Date: 20080115
  Serious: Yes (Life-Threatening, Hospitalization, Other)
  Sender: FDA-Public Use
  Company Number: PHBS2007JP11842

PATIENT
  Age: 45 Year
  Sex: Female
  Weight: 44 kg

DRUGS (6)
  1. TEGRETOL [Suspect]
     Indication: AFFECTIVE DISORDER
     Dosage: 5000 MG, ONCE/SINGLE
     Route: 048
     Dates: start: 20070706
  2. DEPAS [Suspect]
     Dosage: 1 MG, ONCE/SINGLE
     Route: 048
     Dates: start: 20070706
  3. LEXOTAN [Suspect]
     Dosage: 5 MG, ONCE/SINGLE
     Route: 048
     Dates: start: 20070706
  4. CONSTAN [Suspect]
     Dosage: 0.4 MG, ONCE/SINGLE
     Route: 048
  5. ZOLPIDEM [Suspect]
     Dosage: 10 MG, ONCE/SINGLE
     Route: 048
     Dates: start: 20070706
  6. PAXIL [Suspect]
     Dosage: 20 MG, ONCE/SINGLE
     Route: 048
     Dates: start: 20070706

REACTIONS (19)
  - BLOOD CHLORIDE DECREASED [None]
  - BLOOD CREATININE INCREASED [None]
  - BLOOD GLUCOSE INCREASED [None]
  - BLOOD PRESSURE DECREASED [None]
  - CONVULSION [None]
  - DEPRESSED LEVEL OF CONSCIOUSNESS [None]
  - DRUG LEVEL INCREASED [None]
  - DRUG TOXICITY [None]
  - DYSKINESIA [None]
  - HEART RATE INCREASED [None]
  - HYPOCALCAEMIA [None]
  - HYPONATRAEMIA [None]
  - INTENTIONAL OVERDOSE [None]
  - JAPAN COMA SCALE ABNORMAL [None]
  - PYREXIA [None]
  - SUICIDE ATTEMPT [None]
  - TETANY [None]
  - URINE CALCIUM INCREASED [None]
  - WHITE BLOOD CELL COUNT INCREASED [None]
